FAERS Safety Report 8830165 (Version 1)
Quarter: 2012Q4

REPORT INFORMATION
  Report Type: 
  Country: JP (occurrence: JP)
  Receive Date: 20121008
  Receipt Date: 20121008
  Transmission Date: 20130627
  Serious: Yes (Other)
  Sender: FDA-Public Use
  Company Number: JP-ASTRAZENECA-2012SE75668

PATIENT
  Age: 60 Year
  Sex: Female

DRUGS (2)
  1. CRESTOR [Suspect]
     Indication: DYSLIPIDAEMIA
     Route: 048
     Dates: start: 20120529
  2. LENDORMIN [Suspect]
     Dosage: As required, before going to bed
     Route: 048
     Dates: start: 20120529

REACTIONS (1)
  - Suicidal ideation [Unknown]
